FAERS Safety Report 21022524 (Version 1)
Quarter: 2022Q2

REPORT INFORMATION
  Report Type: Spontaneous
  Country: US (occurrence: US)
  Receive Date: 20220629
  Receipt Date: 20220629
  Transmission Date: 20220721
  Serious: No
  Sender: FDA-Public Use
  Company Number: US-BAYER-2022A090189

PATIENT
  Age: 76 Year
  Sex: Female

DRUGS (1)
  1. MIRALAX [Suspect]
     Active Substance: POLYETHYLENE GLYCOL 3350
     Indication: Product used for unknown indication
     Dosage: 30OZ A DAY
     Route: 048
     Dates: start: 2021

REACTIONS (2)
  - Abdominal pain upper [Not Recovered/Not Resolved]
  - Incorrect product administration duration [None]

NARRATIVE: CASE EVENT DATE: 20220601
